FAERS Safety Report 14312072 (Version 2)
Quarter: 2018Q1

REPORT INFORMATION
  Report Type: Report from Study
  Country: US (occurrence: US)
  Receive Date: 20171221
  Receipt Date: 20180123
  Transmission Date: 20180509
  Serious: Yes (Other)
  Sender: FDA-Public Use
  Company Number: US-TEVA-2017-US-838057

PATIENT
  Age: 50 Year
  Sex: Male

DRUGS (2)
  1. AUSTEDO [Suspect]
     Active Substance: DEUTETRABENAZINE
     Route: 065
     Dates: start: 201711, end: 20171218
  2. ZOLOFT [Concomitant]
     Active Substance: SERTRALINE HYDROCHLORIDE
     Indication: DEPRESSION

REACTIONS (5)
  - Paranoia [Unknown]
  - Drug abuse [Unknown]
  - Suicidal ideation [Unknown]
  - Delusion [Unknown]
  - Anxiety [Unknown]

NARRATIVE: CASE EVENT DATE: 2017
